FAERS Safety Report 26053247 (Version 1)
Quarter: 2025Q4

REPORT INFORMATION
  Report Type: Spontaneous
  Country: US (occurrence: None)
  Receive Date: 20251115
  Receipt Date: 20251115
  Transmission Date: 20260117
  Serious: Yes (Death)
  Sender: FDA-CTU
  Company Number: None

PATIENT
  Age: 52 Year
  Sex: Male

DRUGS (1)
  1. VEPESID [Suspect]
     Active Substance: ETOPOSIDE
     Dosage: OTHER QUANTITY : 200MG, 250MG;?FREQUENCY : TWICE A DAY;?

REACTIONS (1)
  - Death [None]
